FAERS Safety Report 7069497-5 (Version None)
Quarter: 2010Q4

REPORT INFORMATION
  Report Type: 
  Country: None (occurrence: None)
  Receive Date: 20101028
  Receipt Date: 20100105
  Transmission Date: 20110411
  Serious: No
  Sender: FDA-Public Use
  Company Number: US-WYE-H12866110

PATIENT
  Age: 80 Year
  Sex: Male

DRUGS (5)
  1. AMIODARONE [Suspect]
     Dosage: UNKNOWN
     Dates: end: 20080701
  2. WARFARIN SODIUM [Interacting]
     Dosage: UNKNOWN
  3. WARFARIN SODIUM [Interacting]
  4. LISINOPRIL [Interacting]
     Dosage: UNKNOWN
  5. LISINOPRIL [Interacting]

REACTIONS (4)
  - DRUG INTERACTION [None]
  - DYSPNOEA [None]
  - EPISTAXIS [None]
  - THYROID DISORDER [None]
